FAERS Safety Report 20331654 (Version 3)
Quarter: 2022Q2

REPORT INFORMATION
  Report Type: Spontaneous
  Country: SE (occurrence: SE)
  Receive Date: 20220113
  Receipt Date: 20220401
  Transmission Date: 20220720
  Serious: Yes (Other)
  Sender: FDA-Public Use
  Company Number: SE-PFIZER INC-202200006693

PATIENT
  Age: 68 Year
  Sex: Male

DRUGS (2)
  1. FRAGMIN [Suspect]
     Active Substance: DALTEPARIN SODIUM
     Indication: Venous thrombosis
     Dosage: 15000 IU
     Dates: start: 202109
  2. FRAGMIN [Suspect]
     Active Substance: DALTEPARIN SODIUM
     Dosage: 20000 IU
     Dates: end: 20220110

REACTIONS (2)
  - Vascular device infection [Unknown]
  - Deep vein thrombosis [Unknown]
